FAERS Safety Report 8541280-0 (Version None)
Quarter: 2012Q3

REPORT INFORMATION
  Report Type: 
  Country: None (occurrence: None)
  Receive Date: 20120726
  Receipt Date: 20120720
  Transmission Date: 20120928
  Serious: No
  Sender: FDA-Public Use
  Company Number: US-B.I. PHARMACEUTICALS,INC./RIDGEFIELD-2012-BP-16260BP

PATIENT
  Sex: Female

DRUGS (2)
  1. PURPLE INHALER (ADVAIR?) [Concomitant]
  2. SPIRIVA [Suspect]
     Route: 055
     Dates: start: 20060101

REACTIONS (1)
  - TOOTH INJURY [None]
